FAERS Safety Report 6255477-6 (Version None)
Quarter: 2009Q3

REPORT INFORMATION
  Report Type: 
  Country: None (occurrence: None)
  Receive Date: 20090702
  Receipt Date: 20090623
  Transmission Date: 20100115
  Serious: Yes (Life-Threatening, Hospitalization)
  Sender: FDA-Public Use
  Company Number: DE-GENENTECH-285746

PATIENT
  Sex: Female

DRUGS (4)
  1. AVASTIN [Suspect]
     Indication: COLON CANCER METASTATIC
     Dosage: 290 MG, UNK
     Route: 042
     Dates: start: 20090310, end: 20090421
  2. IRINOTECAN HCL [Suspect]
     Indication: COLON CANCER METASTATIC
     Dosage: 190 MG, UNK
     Route: 042
     Dates: start: 20090310, end: 20090421
  3. FOLINIC ACID [Suspect]
     Indication: COLON CANCER METASTATIC
     Dosage: 640 MG, UNK
     Route: 040
     Dates: start: 20090310, end: 20090421
  4. FLUOROURACIL [Suspect]
     Indication: COLON CANCER METASTATIC
     Dosage: 3480 MG, UNK
     Route: 042
     Dates: start: 20090310, end: 20090421

REACTIONS (2)
  - ILEAL ULCER [None]
  - ILEOCOLECTOMY [None]
